FAERS Safety Report 15786588 (Version 2)
Quarter: 2019Q1

REPORT INFORMATION
  Report Type: Report from Study
  Country: CA (occurrence: CA)
  Receive Date: 20190103
  Receipt Date: 20190226
  Transmission Date: 20190417
  Serious: Yes (Hospitalization, Other)
  Sender: FDA-Public Use
  Company Number: CA-JNJFOC-20181122742

PATIENT
  Age: 40 Year
  Sex: Female
  Weight: 59 kg

DRUGS (3)
  1. STELARA [Suspect]
     Active Substance: USTEKINUMAB
     Indication: CROHN^S DISEASE
     Dosage: STRENGTH = 390 MG
     Route: 042
  2. STELARA [Suspect]
     Active Substance: USTEKINUMAB
     Indication: CROHN^S DISEASE
     Dosage: STRENGTH = 390 MG
     Route: 042
     Dates: start: 20181105
  3. STELARA [Suspect]
     Active Substance: USTEKINUMAB
     Indication: CROHN^S DISEASE
     Route: 042

REACTIONS (7)
  - Nerve injury [Recovering/Resolving]
  - Product use issue [Unknown]
  - Drug ineffective [Unknown]
  - Off label use [Unknown]
  - Hernia [Not Recovered/Not Resolved]
  - Headache [Recovering/Resolving]
  - Crohn^s disease [Not Recovered/Not Resolved]

NARRATIVE: CASE EVENT DATE: 2018
